FAERS Safety Report 24256180 (Version 1)
Quarter: 2024Q3

REPORT INFORMATION
  Report Type: Spontaneous
  Country: US (occurrence: US)
  Receive Date: 20240827
  Receipt Date: 20240827
  Transmission Date: 20241016
  Serious: No
  Sender: AMGEN
  Company Number: US-AMGEN-USASP2024168399

PATIENT

DRUGS (2)
  1. NPLATE [Suspect]
     Active Substance: ROMIPLOSTIM
     Indication: Product used for unknown indication
     Dosage: UNK
     Route: 065
  2. NPLATE [Suspect]
     Active Substance: ROMIPLOSTIM
     Dosage: UNK, STOPPING AND RESTARTING NPLATE
     Route: 065

REACTIONS (1)
  - Platelet count abnormal [Unknown]
